FAERS Safety Report 5383326-7 (Version None)
Quarter: 2007Q3

REPORT INFORMATION
  Report Type: 
  Country: None (occurrence: None)
  Receive Date: 20070710
  Receipt Date: 20070628
  Transmission Date: 20080115
  Serious: Yes (Hospitalization)
  Sender: FDA-Public Use
  Company Number: CA-PFIZER INC-2007054220

PATIENT
  Age: 60 Year
  Sex: Female

DRUGS (4)
  1. LIPITOR [Suspect]
     Route: 048
  2. METOPROLOL SUCCINATE [Concomitant]
  3. RAMIPRIL [Concomitant]
  4. PLAVIX [Concomitant]

REACTIONS (1)
  - CARPAL TUNNEL SYNDROME [None]
